FAERS Safety Report 15444387 (Version 1)
Quarter: 2018Q3

REPORT INFORMATION
  Report Type: Report from Study
  Country: None (occurrence: AU)
  Receive Date: 20180928
  Receipt Date: 20180928
  Transmission Date: 20181010
  Serious: Yes (Hospitalization, Other)
  Sender: FDA-Public Use
  Company Number: AU-ABBVIE-16P-008-1777537-00

PATIENT
  Sex: Female

DRUGS (1)
  1. DUODOPA [Suspect]
     Active Substance: CARBIDOPA\LEVODOPA
     Indication: PARKINSON^S DISEASE
     Dosage: DUODOPA 100 ML GEL CASSETTE
     Route: 050
     Dates: start: 20110512

REACTIONS (13)
  - Intentional device misuse [Unknown]
  - Dystonia [Unknown]
  - Drug abuse [Unknown]
  - Fall [Unknown]
  - Cognitive disorder [Unknown]
  - Intentional product misuse [Unknown]
  - Freezing phenomenon [Unknown]
  - Drug dependence [Unknown]
  - Psychotic disorder [Not Recovered/Not Resolved]
  - General physical health deterioration [Unknown]
  - Joint dislocation [Unknown]
  - Hallucination [Not Recovered/Not Resolved]
  - Overdose [Not Recovered/Not Resolved]
